FAERS Safety Report 8083244-X (Version None)
Quarter: 2012Q1

REPORT INFORMATION
  Report Type: 
  Country: None (occurrence: None)
  Receive Date: 20120127
  Receipt Date: 20110303
  Transmission Date: 20120608
  Serious: No
  Sender: FDA-Public Use
  Company Number: US-ABBOTT-11P-163-0709181-00

PATIENT
  Age: 73 Year
  Sex: Female

DRUGS (4)
  1. VITAMIN B-12 [Concomitant]
     Indication: PRODUCT USED FOR UNKNOWN INDICATION
  2. SYNTHROID [Concomitant]
     Indication: HYPOTHYROIDISM
  3. NAPORSYN [Concomitant]
     Indication: ARTHRALGIA
  4. HUMIRA [Suspect]
     Indication: CROHN'S DISEASE
     Dates: start: 20110128, end: 20110212

REACTIONS (2)
  - URINARY TRACT INFECTION [None]
  - ABSCESS [None]
